FAERS Safety Report 8313633-7 (Version None)
Quarter: 2012Q2

REPORT INFORMATION
  Report Type: 
  Country: None (occurrence: None)
  Receive Date: 20120426
  Receipt Date: 20120419
  Transmission Date: 20120825
  Serious: No
  Sender: FDA-Public Use
  Company Number: US-ASTELLAS-2012US003076

PATIENT
  Sex: Female

DRUGS (2)
  1. PROGRAF [Suspect]
     Indication: NEPHRITIS
     Dosage: 2 MG, BID
     Route: 048
  2. PROGRAF [Suspect]
     Indication: NEPHROPATHY

REACTIONS (1)
  - NO ADVERSE EVENT [None]
